FAERS Safety Report 7792198-2 (Version None)
Quarter: 2011Q4

REPORT INFORMATION
  Report Type: 
  Country: None (occurrence: None)
  Receive Date: 20111003
  Receipt Date: 20111003
  Transmission Date: 20120403
  Serious: Yes (Hospitalization)
  Sender: FDA-Public Use
  Company Number: None

PATIENT
  Age: 60 Year
  Sex: Female
  Weight: 68.038 kg

DRUGS (2)
  1. FOSAMAX [Suspect]
     Indication: OSTEOPENIA
     Dosage: ONE
     Route: 048
     Dates: start: 19961001, end: 20080101
  2. ALENDRONATE SODIUM [Concomitant]
     Indication: OSTEOPENIA
     Dosage: ONE
     Route: 048
     Dates: start: 20080101, end: 20101001

REACTIONS (3)
  - ACTIVITIES OF DAILY LIVING IMPAIRED [None]
  - FEMUR FRACTURE [None]
  - IMPAIRED HEALING [None]
